FAERS Safety Report 5405318-1 (Version None)
Quarter: 2007Q3

REPORT INFORMATION
  Report Type: 
  Country: None (occurrence: None)
  Receive Date: 20070803
  Receipt Date: 20070730
  Transmission Date: 20080115
  Serious: Yes (Other)
  Sender: FDA-Public Use
  Company Number: B0481906A

PATIENT
  Age: 24 Year
  Sex: Male
  Weight: 80 kg

DRUGS (1)
  1. ZYBAN [Suspect]
     Indication: DRUG USE FOR UNKNOWN INDICATION
     Dosage: 150MG PER DAY
     Route: 047
     Dates: start: 20070210, end: 20070402

REACTIONS (1)
  - HALLUCINATION, AUDITORY [None]
